FAERS Safety Report 8058349-X (Version None)
Quarter: 2012Q1

REPORT INFORMATION
  Report Type: 
  Country: None (occurrence: None)
  Receive Date: 20120120
  Receipt Date: 20120116
  Transmission Date: 20120608
  Serious: Yes (Death, Hospitalization)
  Sender: FDA-Public Use
  Company Number: US-ELI_LILLY_AND_COMPANY-US201111004139

PATIENT
  Sex: Female

DRUGS (1)
  1. ZYPREXA [Suspect]
     Dosage: 7.5 MG, BID

REACTIONS (5)
  - DEATH [None]
  - NAUSEA [None]
  - DEHYDRATION [None]
  - RENAL DISORDER [None]
  - VOMITING [None]
